FAERS Safety Report 14583906 (Version 2)
Quarter: 2018Q1

REPORT INFORMATION
  Report Type: Spontaneous
  Country: GR (occurrence: GR)
  Receive Date: 20180228
  Receipt Date: 20180330
  Transmission Date: 20180509
  Serious: Yes (Other)
  Sender: FDA-Public Use
  Company Number: GR-GLAXOSMITHKLINE-GR2018028672

PATIENT
  Age: 49 Year
  Sex: Male
  Weight: 107 kg

DRUGS (15)
  1. DIMETINDENE MALEATE [Concomitant]
     Active Substance: DIMETHINDENE MALEATE
     Indication: PRODUCT USED FOR UNKNOWN INDICATION
     Dosage: UNK
     Route: 042
  2. LIDOCAINE. [Suspect]
     Active Substance: LIDOCAINE
     Indication: INDUCTION OF ANAESTHESIA
     Dosage: DOSAGE FORM: UNSPECIFIED
     Route: 065
  3. KETAMINE [Suspect]
     Active Substance: KETAMINE
     Indication: BRONCHOSPASM
     Dosage: DOSAGE FORM: UNSPECIFIED
     Route: 042
  4. RANITIDINE. [Suspect]
     Active Substance: RANITIDINE
     Indication: PRODUCT USED FOR UNKNOWN INDICATION
     Dosage: DOSAGE FORM: UNSPECIFIED
     Route: 042
  5. ROCURONIUM [Suspect]
     Active Substance: ROCURONIUM BROMIDE
     Indication: BRONCHOSPASM
     Dosage: DOSAGE FORM: UNSPECIFIED
     Route: 065
  6. MIDAZOLAM [Suspect]
     Active Substance: MIDAZOLAM HYDROCHLORIDE
     Indication: MAINTENANCE OF ANAESTHESIA
     Dosage: 2 MG, UNK
     Route: 042
  7. KETAMINE [Suspect]
     Active Substance: KETAMINE
     Dosage: 20 MG, UNK, TWO BOLUS DOSES
     Route: 042
  8. SEVOFLURANE. [Suspect]
     Active Substance: SEVOFLURANE
     Indication: MAINTENANCE OF ANAESTHESIA
     Dosage: UNK
     Route: 065
  9. FENTANYL CITRATE. [Suspect]
     Active Substance: FENTANYL CITRATE
     Indication: INDUCTION OF ANAESTHESIA
     Dosage: DOSAGE FORM: SOLUTION
     Route: 042
  10. ROCURONIUM [Suspect]
     Active Substance: ROCURONIUM BROMIDE
     Indication: INDUCTION OF ANAESTHESIA
  11. ADRENALINE [Concomitant]
     Active Substance: EPINEPHRINE
     Indication: WHEEZING
     Dosage: 3 MG, UNK
     Route: 042
  12. MAGNESIUM SULFATE. [Suspect]
     Active Substance: MAGNESIUM SULFATE
     Indication: BRONCHOSPASM
     Dosage: DOSAGE FORM: UNSPECIFIED
     Route: 042
  13. PROPOFOL. [Suspect]
     Active Substance: PROPOFOL
     Indication: INDUCTION OF ANAESTHESIA
     Dosage: 200 MG, UNK
     Route: 065
  14. IPRATROPIUM BROMIDE. [Concomitant]
     Active Substance: IPRATROPIUM BROMIDE
     Indication: ANAESTHETIC PREMEDICATION
     Dosage: UNK
     Route: 065
  15. HYDROCORTISONE. [Concomitant]
     Active Substance: HYDROCORTISONE
     Indication: PRODUCT USED FOR UNKNOWN INDICATION
     Dosage: 200 MG, UNK
     Route: 065

REACTIONS (2)
  - Hypotension [Recovered/Resolved]
  - Flushing [Recovered/Resolved]
